FAERS Safety Report 6086405-4 (Version None)
Quarter: 2009Q1

REPORT INFORMATION
  Report Type: 
  Country: None (occurrence: None)
  Receive Date: 20090217
  Receipt Date: 20090202
  Transmission Date: 20090719
  Serious: Yes (Death)
  Sender: FDA-Public Use
  Company Number: CHPA2009US01902

PATIENT
  Age: 45 Year
  Sex: Male

DRUGS (5)
  1. ASPIRIN [Suspect]
     Dosage: ORAL
     Route: 048
  2. ETHYLENE GLYCOL (ETHYLENE GLYCOL) [Suspect]
     Dosage: ORAL
     Route: 048
  3. COCAINE (COCAINE) [Suspect]
     Dosage: ORAL
     Route: 048
  4. ETHANOL (ETHANOL) [Suspect]
     Dosage: ORAL
     Route: 048
  5. ACETAMINOPHEN [Suspect]
     Dosage: ORAL
     Route: 048

REACTIONS (3)
  - CARDIAC ARREST [None]
  - COMPLETED SUICIDE [None]
  - RESPIRATORY ARREST [None]
